FAERS Safety Report 24621258 (Version 1)
Quarter: 2024Q4

REPORT INFORMATION
  Report Type: Spontaneous
  Country: SK (occurrence: SK)
  Receive Date: 20241114
  Receipt Date: 20241114
  Transmission Date: 20250115
  Serious: Yes (Hospitalization, Other)
  Sender: JOHNSON AND JOHNSON
  Company Number: SK-JNJFOC-20241129759

PATIENT
  Sex: Female

DRUGS (3)
  1. TALVEY [Suspect]
     Active Substance: TALQUETAMAB-TGVS
     Indication: Plasma cell myeloma
     Route: 058
     Dates: start: 202309
  2. TALVEY [Suspect]
     Active Substance: TALQUETAMAB-TGVS
     Route: 058
  3. TALVEY [Suspect]
     Active Substance: TALQUETAMAB-TGVS
     Route: 058

REACTIONS (13)
  - Cranial nerve disorder [Unknown]
  - Asthma [Unknown]
  - Plasma cell myeloma [Unknown]
  - Immune effector cell-associated neurotoxicity syndrome [Unknown]
  - Cytokine release syndrome [Unknown]
  - Bronchitis [Unknown]
  - Infection [Unknown]
  - Anaemia [Unknown]
  - Erythema [Unknown]
  - Skin exfoliation [Unknown]
  - Stomatitis [Unknown]
  - Pharyngitis [Unknown]
  - Ageusia [Unknown]

NARRATIVE: CASE EVENT DATE: 20240701
